FAERS Safety Report 12730148 (Version 1)
Quarter: 2016Q3

REPORT INFORMATION
  Report Type: Spontaneous
  Country: CA (occurrence: CA)
  Receive Date: 20160909
  Receipt Date: 20160909
  Transmission Date: 20161109
  Serious: Yes (Death)
  Sender: FDA-Public Use
  Company Number: CA-ACTELION-A-US2016-141636

PATIENT
  Age: 62 Year
  Sex: Female

DRUGS (15)
  1. CARIPUL [Suspect]
     Active Substance: EPOPROSTENOL
     Indication: PULMONARY ARTERIAL HYPERTENSION
     Dosage: UNK NG/ML, UNK
     Route: 042
     Dates: start: 20141007, end: 20160829
  2. DOMPERIDONE [Concomitant]
     Active Substance: DOMPERIDONE
  3. CYCLOBENZAPRINE [Concomitant]
     Active Substance: CYCLOBENZAPRINE
  4. FUROSEMIDE. [Concomitant]
     Active Substance: FUROSEMIDE
  5. SPIRONOLACTONE. [Concomitant]
     Active Substance: SPIRONOLACTONE
  6. OMEGA 3 [Concomitant]
     Active Substance: OMEGA-3 FATTY ACIDS
  7. CLONAZEPAM. [Concomitant]
     Active Substance: CLONAZEPAM
  8. ZAROXOLYN [Concomitant]
     Active Substance: METOLAZONE
  9. ROSUVASTATIN. [Concomitant]
     Active Substance: ROSUVASTATIN
  10. STATEX [Concomitant]
     Active Substance: MORPHINE SULFATE
  11. RABEPRAZOLE [Concomitant]
     Active Substance: RABEPRAZOLE
  12. RISEDRONATE [Concomitant]
     Active Substance: RISEDRONATE SODIUM
  13. ADCIRCA [Concomitant]
     Active Substance: TADALAFIL
  14. PREDNISONE. [Concomitant]
     Active Substance: PREDNISONE
  15. PROBIOTIC [Concomitant]
     Active Substance: PROBIOTICS NOS

REACTIONS (1)
  - Death [Fatal]

NARRATIVE: CASE EVENT DATE: 20160829
